FAERS Safety Report 17328076 (Version 2)
Quarter: 2020Q1

REPORT INFORMATION
  Report Type: Spontaneous
  Country: GR (occurrence: GR)
  Receive Date: 20200127
  Receipt Date: 20200207
  Transmission Date: 20200409
  Serious: Yes (Hospitalization, Other)
  Sender: FDA-Public Use
  Company Number: GR-FERRINGPH-2020FE00331

PATIENT
  Age: 75 Year
  Sex: Female
  Weight: 80 kg

DRUGS (1)
  1. PICOPREP [Suspect]
     Active Substance: ANHYDROUS CITRIC ACID\MAGNESIUM OXIDE\SODIUM PICOSULFATE
     Indication: BOWEL PREPARATION
     Dosage: 2 DF, ONCE/SINGLE
     Route: 048

REACTIONS (4)
  - Loss of consciousness [Recovered/Resolved]
  - Hyponatraemia [Recovered/Resolved]
  - Syncope [Recovered/Resolved]
  - Treatment noncompliance [Recovered/Resolved]
